FAERS Safety Report 6236112-X (Version None)
Quarter: 2009Q2

REPORT INFORMATION
  Report Type: 
  Country: None (occurrence: None)
  Receive Date: 20090616
  Receipt Date: 20090604
  Transmission Date: 20091009
  Serious: Yes (Other)
  Sender: FDA-Public Use
  Company Number: CHPA2009US12775

PATIENT
  Age: 77 Year
  Sex: Male

DRUGS (3)
  1. EXCEDRIN (MIGRAINE) [Suspect]
     Indication: HEADACHE
     Dosage: 2 DF, QD, PRN, ORAL
     Route: 048
  2. ACETYLSALICYLIC ACID SRT [Suspect]
     Indication: HEADACHE
     Dosage: 80 MG
  3. TESTOSTERONE [Suspect]

REACTIONS (2)
  - HAEMOPTYSIS [None]
  - HEADACHE [None]
